FAERS Safety Report 4611219-9 (Version None)
Quarter: 2005Q1

REPORT INFORMATION
  Report Type: 
  Country: None (occurrence: None)
  Receive Date: 20050315
  Receipt Date: 20050315
  Transmission Date: 20050727
  Serious: Yes (Death)
  Sender: FDA-Public Use
  Company Number: None

PATIENT
  Age: 52 Year
  Sex: Male
  Weight: 88.4514 kg

DRUGS (6)
  1. PAXIL CR [Suspect]
     Indication: ANXIETY
     Dosage: 12.5 MG ONCE PER DAY
     Dates: start: 20040801, end: 20040812
  2. PAXIL CR [Suspect]
     Indication: DEPRESSION
     Dosage: 12.5 MG ONCE PER DAY
     Dates: start: 20040801, end: 20040812
  3. PAXIL CR [Suspect]
     Indication: ANXIETY
     Dosage: 37.5 MG ONCE PER DAY
     Dates: start: 20040813, end: 20040828
  4. PAXIL CR [Suspect]
     Indication: DEPRESSION
     Dosage: 37.5 MG ONCE PER DAY
     Dates: start: 20040813, end: 20040828
  5. DIAZEPAM [Concomitant]
  6. AMBIEN [Concomitant]

REACTIONS (13)
  - ABNORMAL BEHAVIOUR [None]
  - AMNESIA [None]
  - BURNING SENSATION [None]
  - DEPRESSED LEVEL OF CONSCIOUSNESS [None]
  - DEPRESSION [None]
  - DISTURBANCE IN ATTENTION [None]
  - DRY MOUTH [None]
  - GUN SHOT WOUND [None]
  - HEADACHE [None]
  - MOOD ALTERED [None]
  - PAIN [None]
  - SUICIDAL IDEATION [None]
  - WEIGHT DECREASED [None]
